FAERS Safety Report 5472244-1 (Version None)
Quarter: 2007Q3

REPORT INFORMATION
  Report Type: 
  Country: None (occurrence: None)
  Receive Date: 20070926
  Receipt Date: 20070824
  Transmission Date: 20080115
  Serious: Yes (Other)
  Sender: FDA-Public Use
  Company Number: CHPA2007US09097

PATIENT
  Sex: Female

DRUGS (1)
  1. KERI ORIGINAL FRAGRANCE FREE SENSITIVE SKIN (NCH)(NO INGREDIENTS/SUBST [Suspect]
     Dosage: TOPICAL
     Route: 061
     Dates: start: 20070801

REACTIONS (3)
  - BLISTER [None]
  - PRURITUS [None]
  - RASH ERYTHEMATOUS [None]
